FAERS Safety Report 5292517-5 (Version None)
Quarter: 2007Q2

REPORT INFORMATION
  Report Type: 
  Country: None (occurrence: None)
  Receive Date: 20070410
  Receipt Date: 20070327
  Transmission Date: 20071010
  Serious: Yes (Other)
  Sender: FDA-Public Use
  Company Number: US-AMGEN-US217054

PATIENT
  Sex: Female
  Weight: 47.7 kg

DRUGS (2)
  1. ENBREL [Suspect]
     Indication: DRUG USE FOR UNKNOWN INDICATION
     Route: 058
     Dates: start: 20030701
  2. SORIATANE [Concomitant]
     Route: 065
     Dates: start: 19980101

REACTIONS (8)
  - FEELING HOT [None]
  - INJECTION SITE REACTION [None]
  - NIGHT SWEATS [None]
  - PAIN [None]
  - PARAESTHESIA [None]
  - PRURITUS GENERALISED [None]
  - SWELLING [None]
  - TUBERCULOSIS [None]
